FAERS Safety Report 11832358 (Version 1)
Quarter: 2015Q4

REPORT INFORMATION
  Report Type: Report from Study
  Country: US (occurrence: US)
  Receive Date: 20151214
  Receipt Date: 20151214
  Transmission Date: 20160305
  Serious: No
  Sender: FDA-Public Use
  Company Number: US-ABBVIE-15P-163-1508206-00

PATIENT
  Age: 34 Year
  Sex: Female

DRUGS (4)
  1. ELMIRON [Concomitant]
     Active Substance: PENTOSAN POLYSULFATE SODIUM
     Indication: CYSTITIS
     Dosage: 1 TABLET IN AM, 2 TABLETS PM
     Route: 048
     Dates: start: 20151022
  2. LUPANETA PACK [Suspect]
     Active Substance: ISOPROPYL ALCOHOL\LEUPROLIDE ACETATE\NORETHINDRONE ACETATE
     Indication: ENDOMETRIOSIS
     Dosage: DAILY
     Route: 048
     Dates: start: 20151113
  3. LUPANETA PACK [Suspect]
     Active Substance: ISOPROPYL ALCOHOL\LEUPROLIDE ACETATE\NORETHINDRONE ACETATE
     Indication: ENDOMETRIOSIS
     Route: 050
     Dates: start: 20151112
  4. LETROZOLE. [Concomitant]
     Active Substance: LETROZOLE
     Indication: INFERTILITY
     Dosage: DAILY
     Route: 048
     Dates: start: 20151112

REACTIONS (2)
  - Drug dose omission [Recovered/Resolved]
  - Menorrhagia [Not Recovered/Not Resolved]

NARRATIVE: CASE EVENT DATE: 20151121
